FAERS Safety Report 21558112 (Version 1)
Quarter: 2022Q4

REPORT INFORMATION
  Report Type: Spontaneous
  Country: GR (occurrence: GR)
  Receive Date: 20221107
  Receipt Date: 20221107
  Transmission Date: 20230113
  Serious: Yes (Other)
  Sender: FDA-Public Use
  Company Number: None

PATIENT
  Age: 72 Year
  Sex: Male
  Weight: 80 kg

DRUGS (2)
  1. ROSUVASTATIN [Suspect]
     Active Substance: ROSUVASTATIN
     Indication: Coronary artery disease
     Dosage: UNK
     Route: 065
     Dates: end: 20210901
  2. ATORVASTATIN [Suspect]
     Active Substance: ATORVASTATIN
     Indication: Coronary artery disease
     Dosage: UNK
     Route: 065
     Dates: start: 20151001, end: 20191101

REACTIONS (4)
  - Drug-induced liver injury [Recovering/Resolving]
  - Blood creatine phosphokinase increased [Recovering/Resolving]
  - Myopathy [Recovered/Resolved]
  - Myopathy [Recovering/Resolving]

NARRATIVE: CASE EVENT DATE: 20190701
